FAERS Safety Report 12917006 (Version 1)
Quarter: 2016Q4

REPORT INFORMATION
  Report Type: Spontaneous
  Country: US (occurrence: US)
  Receive Date: 20161107
  Receipt Date: 20161107
  Transmission Date: 20170207
  Serious: No
  Sender: FDA-Public Use
  Company Number: US-JAZZ-2016-US-017360

PATIENT
  Sex: Male

DRUGS (38)
  1. XYREM [Suspect]
     Active Substance: SODIUM OXYBATE
     Dosage: 4.5 G, BID
     Route: 048
     Dates: start: 201603
  2. BUSPIRONE HCL [Concomitant]
     Active Substance: BUSPIRONE HYDROCHLORIDE
  3. CLONAZEPAM. [Concomitant]
     Active Substance: CLONAZEPAM
  4. HYDROCORTISONE. [Concomitant]
     Active Substance: HYDROCORTISONE
  5. SUMATRIPTAN. [Concomitant]
     Active Substance: SUMATRIPTAN
  6. DERMOPLAST PAIN RELIEVING [Concomitant]
     Active Substance: BENZOCAINE\MENTHOL
  7. GABAPENTIN. [Concomitant]
     Active Substance: GABAPENTIN
  8. OCEAN SALINE NASAL SPRAY [Concomitant]
     Active Substance: SODIUM CHLORIDE
  9. POLYTRIM [Concomitant]
     Active Substance: POLYMYXIN B SULFATE\TRIMETHOPRIM SULFATE
  10. XYREM [Suspect]
     Active Substance: SODIUM OXYBATE
     Dosage: DOSE ADJUSTMENTS
     Route: 048
     Dates: start: 201008, end: 201603
  11. MELOXICAM. [Concomitant]
     Active Substance: MELOXICAM
  12. BETAMETHASONE. [Concomitant]
     Active Substance: BETAMETHASONE
  13. CLINDAMYCIN HCL [Concomitant]
     Active Substance: CLINDAMYCIN HYDROCHLORIDE
  14. SEROQUEL [Concomitant]
     Active Substance: QUETIAPINE FUMARATE
  15. TOPIRAMATE. [Concomitant]
     Active Substance: TOPIRAMATE
  16. CLOBETASOL [Concomitant]
     Active Substance: CLOBETASOL
  17. FISH OIL [Concomitant]
     Active Substance: FISH OIL
  18. NORCO [Concomitant]
     Active Substance: ACETAMINOPHEN\HYDROCODONE BITARTRATE
  19. RESTASIS [Concomitant]
     Active Substance: CYCLOSPORINE
  20. TERAZOSIN [Concomitant]
     Active Substance: TERAZOSIN\TERAZOSIN HYDROCHLORIDE
  21. XYREM [Suspect]
     Active Substance: SODIUM OXYBATE
     Indication: INSOMNIA
     Dosage: 2.5 G, BID
     Route: 048
     Dates: start: 201008, end: 201008
  22. AMBIEN [Concomitant]
     Active Substance: ZOLPIDEM TARTRATE
  23. ELAVIL [Concomitant]
     Active Substance: AMITRIPTYLINE HYDROCHLORIDE
  24. FLONASE [Concomitant]
     Active Substance: FLUTICASONE PROPIONATE
  25. FLUOCINONIDE F [Concomitant]
  26. TOVIAZ [Concomitant]
     Active Substance: FESOTERODINE FUMARATE
  27. VITAMIN C [Concomitant]
     Active Substance: ASCORBIC ACID
  28. ALLOPURINOL. [Concomitant]
     Active Substance: ALLOPURINOL
  29. HYDROCORTISONE. [Concomitant]
     Active Substance: HYDROCORTISONE
  30. PENLAC [Concomitant]
     Active Substance: CICLOPIROX
  31. VITAMIN D3 [Concomitant]
     Active Substance: CHOLECALCIFEROL
  32. ALPHA LIPOIC ACID [Concomitant]
     Active Substance: .ALPHA.-LIPOIC ACID
  33. BOTOX [Concomitant]
     Active Substance: ONABOTULINUMTOXINA
  34. CLINDAMYCIN. [Concomitant]
     Active Substance: CLINDAMYCIN
  35. CORTISPORIN [Concomitant]
     Active Substance: BACITRACIN ZINC\HYDROCORTISONE\NEOMYCIN SULFATE\POLYMYXIN B SULFATE
  36. FLUOCINONIDE F [Concomitant]
  37. CEVIMELINE HCL [Concomitant]
     Active Substance: CEVIMELINE HYDROCHLORIDE
  38. TYLENOL WITH CODEINE [Concomitant]
     Active Substance: ACETAMINOPHEN\CODEINE PHOSPHATE

REACTIONS (5)
  - Eczema [Recovering/Resolving]
  - Otitis externa [Not Recovered/Not Resolved]
  - Migraine [Recovering/Resolving]
  - Haemorrhoids [Recovering/Resolving]
  - Onychomycosis [Unknown]

NARRATIVE: CASE EVENT DATE: 2013
